FAERS Safety Report 7954747-0 (Version None)
Quarter: 2011Q4

REPORT INFORMATION
  Report Type: 
  Country: None (occurrence: None)
  Receive Date: 20111202
  Receipt Date: 20111121
  Transmission Date: 20120403
  Serious: Yes (Hospitalization)
  Sender: FDA-Public Use
  Company Number: JP-ROCHE-790592

PATIENT
  Sex: Male
  Weight: 76 kg

DRUGS (19)
  1. MYCOPHENOLATE MOFETIL (CELLCEPT) [Suspect]
     Route: 048
     Dates: start: 20051009, end: 20070702
  2. SULFAMETHOXAZOLE AND TRIMETHOPRIM [Concomitant]
     Indication: PROPHYLAXIS
     Route: 048
  3. MYCOPHENOLATE MOFETIL (CELLCEPT) [Suspect]
     Route: 048
  4. PREDNISOLONE [Suspect]
     Route: 048
     Dates: start: 20050101, end: 20060919
  5. FAMOTIDINE [Concomitant]
     Indication: PROPHYLAXIS
     Route: 048
  6. MYCOPHENOLATE MOFETIL (CELLCEPT) [Suspect]
     Route: 048
     Dates: start: 20050114, end: 20051006
  7. ENALAPRIL MALEATE [Concomitant]
     Indication: HYPERTENSION
     Route: 048
  8. MYCOPHENOLATE MOFETIL (CELLCEPT) [Suspect]
     Indication: PROPHYLAXIS AGAINST TRANSPLANT REJECTION
     Route: 048
  9. MYCOPHENOLATE MOFETIL (CELLCEPT) [Suspect]
     Route: 048
     Dates: start: 20030131, end: 20050113
  10. GLIMICRON [Concomitant]
     Indication: DIABETES MELLITUS
     Route: 048
  11. ADRENAL HORMONE PREPARATION (UNK INGREDIENTS) [Concomitant]
     Indication: HEART TRANSPLANT REJECTION
     Dosage: STERIOD PULSE THERAPY
     Route: 041
     Dates: start: 20030101, end: 20030101
  12. ALLOPURINOL [Concomitant]
     Indication: PROPHYLAXIS
     Route: 048
  13. ADRENAL HORMONE PREPARATION (UNK INGREDIENTS) [Concomitant]
     Indication: PROPHYLAXIS AGAINST TRANSPLANT REJECTION
     Route: 065
     Dates: start: 20101001, end: 20101001
  14. TACROLIMUS [Suspect]
     Indication: PROPHYLAXIS AGAINST TRANSPLANT REJECTION
     Route: 048
  15. PREDNISOLONE [Suspect]
     Indication: PROPHYLAXIS AGAINST TRANSPLANT REJECTION
     Route: 048
     Dates: start: 20001001, end: 20050101
  16. DILTIAZEM HCL [Concomitant]
     Indication: HYPERTENSION
     Route: 048
  17. PRAVASTATIN SODIUM [Concomitant]
     Indication: PROPHYLAXIS
     Dosage: FORM:PREORAL AGENT
     Route: 048
  18. BUFFERIN (JAPAN) [Concomitant]
     Indication: PROPHYLAXIS
     Route: 048
  19. URINORM [Concomitant]
     Indication: PROPHYLAXIS
     Dosage: FREQUENCY:FOR SINGLE USE
     Route: 048
     Dates: start: 20060608, end: 20060705

REACTIONS (5)
  - ERYTHEMA NODOSUM [None]
  - BONE DENSITY DECREASED [None]
  - INFLAMMATION [None]
  - DIARRHOEA [None]
  - CORONARY ARTERY DISEASE [None]
